FAERS Safety Report 19221973 (Version 2)
Quarter: 2021Q3

REPORT INFORMATION
  Report Type: Spontaneous
  Country: JP (occurrence: JP)
  Receive Date: 20210506
  Receipt Date: 20210714
  Transmission Date: 20211014
  Serious: Yes (Hospitalization)
  Sender: FDA-Public Use
  Company Number: JP-MYLANLABS-2021M1026279

PATIENT
  Age: 77 Year
  Sex: Female

DRUGS (11)
  1. PREDONINE [Suspect]
     Active Substance: PREDNISOLONE
     Indication: THROMBOCYTOPENIA
     Dosage: 40 MILLIGRAM, (1MG/KG); INITIATED ON DAY 24
     Route: 065
  2. NEORAL [Suspect]
     Active Substance: CYCLOSPORINE
     Indication: THROMBOCYTOPENIA
     Dosage: INITIATED ON DAY 86
     Route: 065
  3. DANAZOL. [Concomitant]
     Active Substance: DANAZOL
     Dosage: DOSE REDUCED
     Route: 065
  4. PEMETREXED. [Concomitant]
     Active Substance: PEMETREXED
     Indication: NON-SMALL CELL LUNG CANCER STAGE IV
     Dosage: FIRST?LINE TREATMENT
     Route: 065
  5. ELTROMBOPAG [Suspect]
     Active Substance: ELTROMBOPAG
     Indication: THROMBOCYTOPENIA
     Dosage: INITIATED ON DAY 34
     Route: 065
  6. ROMIPLOSTIM [Suspect]
     Active Substance: ROMIPLOSTIM
     Indication: THROMBOCYTOPENIA
     Route: 065
  7. CARBOPLATIN. [Concomitant]
     Active Substance: CARBOPLATIN
     Indication: NON-SMALL CELL LUNG CANCER STAGE IV
     Dosage: FIRST?LINE TREATMENT
     Route: 065
  8. DANAZOL. [Concomitant]
     Active Substance: DANAZOL
     Dosage: DOSE INCREASED
     Route: 065
  9. PREDONINE [Suspect]
     Active Substance: PREDNISOLONE
     Dosage: DOSE DECREASED
     Route: 065
  10. DANAZOL. [Concomitant]
     Active Substance: DANAZOL
     Indication: THROMBOCYTOPENIA
     Dosage: 300 MILLIGRAM, (7.5MG/KG); INITIATED ON DAY 86
     Route: 065
  11. PEMBROLIZUMAB. [Concomitant]
     Active Substance: PEMBROLIZUMAB
     Indication: NON-SMALL CELL LUNG CANCER STAGE IV
     Dosage: FIRST?LINE TREATMENT
     Route: 065

REACTIONS (1)
  - Drug ineffective [Unknown]
